FAERS Safety Report 7775102-2 (Version None)
Quarter: 2011Q3

REPORT INFORMATION
  Report Type: 
  Country: None (occurrence: None)
  Receive Date: 20110923
  Receipt Date: 20110919
  Transmission Date: 20111222
  Serious: Yes (Other)
  Sender: FDA-Public Use
  Company Number: US-ABBOTT-11P-163-0855852-00

PATIENT
  Sex: Female

DRUGS (7)
  1. HUMIRA [Suspect]
     Indication: RHEUMATOID ARTHRITIS
     Dates: start: 20110401
  2. SINGULAIR [Concomitant]
     Indication: ASTHMA
  3. LEXAPRO [Concomitant]
     Indication: ANXIETY
  4. PROTONIX [Concomitant]
     Indication: GASTROOESOPHAGEAL REFLUX DISEASE
  5. FOLIC ACID [Concomitant]
     Indication: VITAMIN SUPPLEMENTATION
  6. METHOTREXATE [Concomitant]
     Indication: RHEUMATOID ARTHRITIS
  7. WELLBUTRIN [Concomitant]
     Indication: ANXIETY

REACTIONS (3)
  - FALL [None]
  - ARTHRALGIA [None]
  - MENISCUS LESION [None]
